FAERS Safety Report 13598689 (Version 1)
Quarter: 2017Q2

REPORT INFORMATION
  Report Type: Spontaneous
  Country: ZA (occurrence: ZA)
  Receive Date: 20170531
  Receipt Date: 20170531
  Transmission Date: 20170830
  Serious: Yes (Other)
  Sender: FDA-Public Use
  Company Number: ZA-PFIZER INC-2017234909

PATIENT
  Sex: Male

DRUGS (5)
  1. LARGACTIL /00011901/ [Concomitant]
     Active Substance: CHLORPROMAZINE
     Dosage: 100 MG, 1X/DAY, AT NIGHT
  2. LITHIUM. [Concomitant]
     Active Substance: LITHIUM
     Dosage: 400 MG, UNK
  3. EPITEC [Concomitant]
     Active Substance: LAMOTRIGINE
     Dosage: 100 MG, UNK
  4. EFFEXOR XR [Suspect]
     Active Substance: VENLAFAXINE HYDROCHLORIDE
     Dosage: 150 MG, 2X/DAY
  5. REMERON [Concomitant]
     Active Substance: MIRTAZAPINE
     Dosage: UNK

REACTIONS (3)
  - Balance disorder [Unknown]
  - Parkinson^s disease [Unknown]
  - Gait disturbance [Unknown]
